FAERS Safety Report 13855434 (Version 2)
Quarter: 2018Q2

REPORT INFORMATION
  Report Type: Spontaneous
  Country: US (occurrence: US)
  Receive Date: 20170810
  Receipt Date: 20180508
  Transmission Date: 20180711
  Serious: No
  Sender: FDA-Public Use
  Company Number: US-VIFOR (INTERNATIONAL) INC.-VIT-2017-07607

PATIENT
  Age: 58 Year
  Sex: Female

DRUGS (6)
  1. VELTASSA [Suspect]
     Active Substance: PATIROMER
     Indication: BLOOD POTASSIUM INCREASED
     Route: 048
     Dates: start: 20170707, end: 2017
  2. AMIODARONE [Concomitant]
     Active Substance: AMIODARONE
  3. MORPHINE [Concomitant]
     Active Substance: MORPHINE
  4. NO DRUG NAME [Concomitant]
  5. CARVEDILOL. [Concomitant]
     Active Substance: CARVEDILOL
  6. INSULIN [Concomitant]
     Active Substance: INSULIN NOS

REACTIONS (11)
  - Hypersomnia [Recovered/Resolved]
  - Decreased appetite [Recovered/Resolved]
  - Gastroenteritis viral [Recovered/Resolved]
  - Feeling abnormal [Recovered/Resolved]
  - Drug dose omission [Recovered/Resolved]
  - Lethargy [Recovered/Resolved]
  - Vital functions abnormal [Recovered/Resolved]
  - Headache [Recovered/Resolved]
  - Therapeutic response unexpected [Recovered/Resolved]
  - Oxygen saturation decreased [Recovered/Resolved]
  - Hypotension [Recovered/Resolved]

NARRATIVE: CASE EVENT DATE: 2017
